FAERS Safety Report 11018201 (Version 2)
Quarter: 2015Q2

REPORT INFORMATION
  Report Type: Spontaneous
  Country: US (occurrence: US)
  Receive Date: 20150412
  Receipt Date: 20150524
  Transmission Date: 20150821
  Serious: No
  Sender: FDA-Public Use
  Company Number: US-JNJFOC-20130501824

PATIENT

DRUGS (4)
  1. CISPLATIN. [Suspect]
     Active Substance: CISPLATIN
     Indication: TRANSITIONAL CELL CARCINOMA URETHRA
     Route: 065
  2. DOXORUBICIN [Suspect]
     Active Substance: DOXORUBICIN
     Indication: TRANSITIONAL CELL CARCINOMA URETHRA
     Route: 042
  3. METHOTREXATE [Suspect]
     Active Substance: METHOTREXATE
     Indication: TRANSITIONAL CELL CARCINOMA URETHRA
     Route: 065
  4. VINBLASTIN [Suspect]
     Active Substance: VINBLASTINE
     Indication: TRANSITIONAL CELL CARCINOMA URETHRA
     Route: 065

REACTIONS (1)
  - Product use issue [Unknown]
